FAERS Safety Report 9913388 (Version 1)
Quarter: 2014Q1

REPORT INFORMATION
  Report Type: Spontaneous
  Country: US (occurrence: None)
  Receive Date: 20140219
  Receipt Date: 20140219
  Transmission Date: 20141002
  Serious: Yes (Hospitalization)
  Sender: FDA-Public Use
  Company Number: None

PATIENT
  Age: 74 Year
  Sex: Male

DRUGS (15)
  1. INSULIN ASPART [Suspect]
     Indication: TYPE 2 DIABETES MELLITUS
     Route: 058
  2. INSULIN GLARGINE [Suspect]
     Indication: TYPE 2 DIABETES MELLITUS
     Route: 058
  3. ASPIRIN [Concomitant]
  4. COLACE [Concomitant]
  5. PEPCID [Concomitant]
  6. FLOMAX [Concomitant]
  7. LANTUS [Concomitant]
  8. LIPITOR [Concomitant]
  9. ACETAMINOPHEN [Concomitant]
  10. LOPRESSOR [Concomitant]
  11. PERCOCET [Concomitant]
  12. PLAVIX [Concomitant]
  13. PROSCAR [Concomitant]
  14. MULTIVITAMIN [Concomitant]
  15. VITAMIN D [Concomitant]

REACTIONS (3)
  - Mental status changes [None]
  - Hyperhidrosis [None]
  - Hypoglycaemia [None]
